FAERS Safety Report 6448322-7 (Version None)
Quarter: 2009Q4

REPORT INFORMATION
  Report Type: 
  Country: None (occurrence: None)
  Receive Date: 20091120
  Receipt Date: 20091113
  Transmission Date: 20100525
  Serious: Yes (Hospitalization, Disabling)
  Sender: FDA-Public Use
  Company Number: PHHY2009GB41743

PATIENT
  Age: 28 Year
  Sex: Male

DRUGS (1)
  1. EXJADE [Suspect]
     Indication: THALASSAEMIA
     Dosage: UNK

REACTIONS (6)
  - FALL [None]
  - INFLUENZA LIKE ILLNESS [None]
  - SURGERY [None]
  - SWELLING [None]
  - VIRAL INFECTION [None]
  - WHEELCHAIR USER [None]
